FAERS Safety Report 4582256-8 (Version None)
Quarter: 2005Q1

REPORT INFORMATION
  Report Type: 
  Country: None (occurrence: None)
  Receive Date: 20050127
  Receipt Date: 20040908
  Transmission Date: 20050727
  Serious: No
  Sender: FDA-Public Use
  Company Number: USA040977563

PATIENT
  Age: 12 Year
  Sex: Male
  Weight: 31 kg

DRUGS (2)
  1. STRATTERA [Suspect]
     Dosage: 25 MG DAY
     Dates: start: 20040701
  2. ADDERALL 10 [Concomitant]

REACTIONS (4)
  - ABNORMAL BEHAVIOUR [None]
  - DISTURBANCE IN ATTENTION [None]
  - FATIGUE [None]
  - SLUGGISHNESS [None]
